FAERS Safety Report 21594547 (Version 4)
Quarter: 2022Q4

REPORT INFORMATION
  Report Type: Spontaneous
  Country: IN (occurrence: IN)
  Receive Date: 20221115
  Receipt Date: 20221124
  Transmission Date: 20230112
  Serious: Yes (Hospitalization, Other)
  Sender: FDA-Public Use
  Company Number: IN-HETERO-HET2022IN02774

PATIENT
  Age: 70 Year
  Sex: Female

DRUGS (1)
  1. PANTOPRAZOLE [Suspect]
     Active Substance: PANTOPRAZOLE
     Indication: Gastritis
     Dosage: 40 MG, QD
     Route: 048

REACTIONS (3)
  - Peripheral sensory neuropathy [Recovering/Resolving]
  - Axonal neuropathy [Recovering/Resolving]
  - Tubulointerstitial nephritis [Recovering/Resolving]
